FAERS Safety Report 18343708 (Version 1)
Quarter: 2020Q4

REPORT INFORMATION
  Report Type: Spontaneous
  Country: US (occurrence: US)
  Receive Date: 20201002
  Receipt Date: 20201002
  Transmission Date: 20210114
  Serious: Yes (Hospitalization)
  Sender: FDA-Public Use
  Company Number: None

PATIENT
  Age: 53 Year
  Sex: Male

DRUGS (2)
  1. IBUPROFEN (IBUPROFEN 800MG TAB) [Suspect]
     Active Substance: IBUPROFEN
     Indication: PAIN
     Dates: start: 20200310, end: 20200720
  2. SULFAMETHOXAZOLE/TRIMETHOPRIM (SULFAMETHOXAZOLE 800MG/TRIMETHOPRIM 160 [Suspect]
     Active Substance: SULFAMETHOXAZOLE\TRIMETHOPRIM
     Indication: URINARY TRACT INFECTION
     Dates: start: 20200716, end: 20200720

REACTIONS (8)
  - Melaena [None]
  - Petechiae [None]
  - Upper gastrointestinal haemorrhage [None]
  - Rash [None]
  - Thrombocytopenia [None]
  - Haematemesis [None]
  - Rash maculo-papular [None]
  - Anaemia [None]

NARRATIVE: CASE EVENT DATE: 20200720
